FAERS Safety Report 4823618-0 (Version None)
Quarter: 2005Q4

REPORT INFORMATION
  Report Type: 
  Country: None (occurrence: None)
  Receive Date: 20051109
  Receipt Date: 20051028
  Transmission Date: 20060501
  Serious: Yes (Death, Hospitalization)
  Sender: FDA-Public Use
  Company Number: US-JNJFOC-20050702193

PATIENT
  Sex: Male

DRUGS (4)
  1. MOTRIN [Suspect]
     Indication: MUSCULOSKELETAL PAIN
     Dosage: UNKNOWN
  2. TYLENOL (CAPLET) [Suspect]
  3. TYLENOL (CAPLET) [Suspect]
     Indication: MUSCULOSKELETAL PAIN
  4. ADVIL [Suspect]
     Indication: MUSCULOSKELETAL PAIN

REACTIONS (5)
  - BACTERIAL SEPSIS [None]
  - MULTI-ORGAN FAILURE [None]
  - PNEUMONIA NECROTISING [None]
  - STEVENS-JOHNSON SYNDROME [None]
  - TOXIC EPIDERMAL NECROLYSIS [None]
